FAERS Safety Report 21488105 (Version 4)
Quarter: 2024Q3

REPORT INFORMATION
  Report Type: Report from Study
  Country: US (occurrence: US)
  Receive Date: 20221020
  Receipt Date: 20240705
  Transmission Date: 20241017
  Serious: Yes (Hospitalization, Other)
  Sender: ACADIA PHARMACEUTICALS
  Company Number: US-ACADIA PHARMACEUTICALS INC.-ACA-2022-PIM-003506

PATIENT
  Age: 72 Year
  Sex: Male

DRUGS (1)
  1. NUPLAZID [Suspect]
     Active Substance: PIMAVANSERIN TARTRATE
     Indication: Parkinson^s disease
     Dosage: 34 MILLIGRAM, QD
     Route: 048
     Dates: start: 20220727

REACTIONS (8)
  - Hip fracture [Unknown]
  - Blood pressure increased [Unknown]
  - Nonspecific reaction [Unknown]
  - Oedema peripheral [Unknown]
  - Constipation [Unknown]
  - Confusional state [Unknown]
  - Constipation [Unknown]
  - Hallucination [Unknown]

NARRATIVE: CASE EVENT DATE: 20221007
